FAERS Safety Report 6182694-6 (Version None)
Quarter: 2009Q2

REPORT INFORMATION
  Report Type: 
  Country: None (occurrence: None)
  Receive Date: 20090507
  Receipt Date: 20090505
  Transmission Date: 20091009
  Serious: Yes (Hospitalization)
  Sender: FDA-Public Use
  Company Number: B0568898A

PATIENT
  Sex: Male

DRUGS (4)
  1. VALACYCLOVIR HCL [Suspect]
     Dosage: 500MG SIX TIMES PER DAY
     Route: 048
     Dates: start: 20090305, end: 20090312
  2. COZAAR [Concomitant]
     Dosage: 50MG UNKNOWN
     Route: 048
  3. CORDARONE [Concomitant]
     Route: 065
  4. PREVISCAN [Concomitant]
     Route: 065

REACTIONS (3)
  - ANURIA [None]
  - CONDITION AGGRAVATED [None]
  - RENAL FAILURE ACUTE [None]
